FAERS Safety Report 11467223 (Version 2)
Quarter: 2015Q3

REPORT INFORMATION
  Report Type: Spontaneous
  Country: US (occurrence: US)
  Receive Date: 20150908
  Receipt Date: 20150909
  Transmission Date: 20151125
  Serious: No
  Sender: FDA-Public Use
  Company Number: US-AMGEN-USASP2015090714

PATIENT
  Age: 45 Year
  Sex: Female

DRUGS (1)
  1. ENBREL [Suspect]
     Active Substance: ETANERCEPT
     Indication: RHEUMATOID ARTHRITIS
     Dosage: 50 MG, ONCE WEEKLY
     Route: 058
     Dates: start: 201505

REACTIONS (6)
  - Condition aggravated [Unknown]
  - Arthralgia [Unknown]
  - Bone pain [Unknown]
  - Weight decreased [Unknown]
  - Depression [Recovered/Resolved]
  - Appetite disorder [Unknown]

NARRATIVE: CASE EVENT DATE: 2015
